FAERS Safety Report 20777964 (Version 1)
Quarter: 2022Q2

REPORT INFORMATION
  Report Type: Spontaneous
  Country: US (occurrence: US)
  Receive Date: 20220503
  Receipt Date: 20220503
  Transmission Date: 20220721
  Serious: Yes (Hospitalization)
  Sender: FDA-Public Use
  Company Number: US-BIOGEN-2021BI01070435

PATIENT
  Sex: Female

DRUGS (1)
  1. TYSABRI [Suspect]
     Active Substance: NATALIZUMAB
     Indication: Multiple sclerosis
     Route: 065
     Dates: start: 20210312

REACTIONS (5)
  - Suicidal ideation [Recovered/Resolved]
  - Mental impairment [Unknown]
  - COVID-19 [Unknown]
  - Memory impairment [Unknown]
  - Stress [Unknown]

NARRATIVE: CASE EVENT DATE: 20210101
